FAERS Safety Report 6486591-8 (Version None)
Quarter: 2009Q4

REPORT INFORMATION
  Report Type: 
  Country: None (occurrence: None)
  Receive Date: 20091209
  Receipt Date: 20091209
  Transmission Date: 20100525
  Serious: Yes (Death)
  Sender: FDA-Public Use
  Company Number: None

PATIENT
  Sex: Male
  Weight: 75.2971 kg

DRUGS (8)
  1. ZYPREXA [Suspect]
     Indication: AGITATION
     Dosage: 2.5MG Q6H PRN IM
     Route: 030
     Dates: start: 20091204, end: 20091204
  2. HALDOL [Concomitant]
  3. LASIX [Concomitant]
  4. NEXIUM [Concomitant]
  5. SOTALOL HCL [Concomitant]
  6. SPIRIVA [Concomitant]
  7. TRAMADOL HCL [Concomitant]
  8. WARFARIN SODIUM [Concomitant]

REACTIONS (2)
  - CARDIAC ARREST [None]
  - RESPIRATORY ARREST [None]
